FAERS Safety Report 26219312 (Version 1)
Quarter: 2025Q4

REPORT INFORMATION
  Report Type: Spontaneous
  Country: PR (occurrence: PR)
  Receive Date: 20251231
  Receipt Date: 20251231
  Transmission Date: 20260118
  Serious: Yes (Hospitalization)
  Sender: ANI
  Company Number: PR-ANIPHARMA-2025-PR-000133

PATIENT
  Age: 74 Year
  Sex: Female
  Weight: 65.77 kg

DRUGS (14)
  1. CORTICOTROPIN [Suspect]
     Active Substance: CORTICOTROPIN
     Indication: Nephrotic syndrome
     Dosage: INJECT 1 ML (80 UNITS) TWICE WEEKLY
     Route: 058
     Dates: start: 20251204
  2. ALENDRONATE [Concomitant]
     Active Substance: ALENDRONATE SODIUM
  3. METOPROLOL [Concomitant]
     Active Substance: METOPROLOL
  4. AMLODIPINE [Concomitant]
     Active Substance: AMLODIPINE BESYLATE
  5. GABAPENTIN [Concomitant]
     Active Substance: GABAPENTIN
  6. PIOGLITAZONE [Concomitant]
     Active Substance: PIOGLITAZONE
  7. Zambia [Concomitant]
  8. LOSARTAN [Concomitant]
     Active Substance: LOSARTAN
  9. HYDRALAZINE [Concomitant]
     Active Substance: HYDRALAZINE HYDROCHLORIDE
  10. ATORVASTATIN [Concomitant]
     Active Substance: ATORVASTATIN
  11. GLIPIZIDE [Concomitant]
     Active Substance: GLIPIZIDE
  12. PLAVIX [Concomitant]
     Active Substance: CLOPIDOGREL BISULFATE
  13. GLYXAMBI [Concomitant]
     Active Substance: EMPAGLIFLOZIN\LINAGLIPTIN
  14. CLONIDINE [Concomitant]
     Active Substance: CLONIDINE

REACTIONS (7)
  - Eructation [Unknown]
  - Heart rate increased [Unknown]
  - Blood pressure increased [Unknown]
  - Blood glucose increased [Unknown]
  - Blood glucose decreased [Unknown]
  - Contraindicated product administered [Unknown]
  - Chest pain [Unknown]
